FAERS Safety Report 23406875 (Version 2)
Quarter: 2024Q1

REPORT INFORMATION
  Report Type: Spontaneous
  Country: IT (occurrence: IT)
  Receive Date: 20240116
  Receipt Date: 20240229
  Transmission Date: 20240410
  Serious: Yes (Life-Threatening, Other)
  Sender: FDA-Public Use
  Company Number: IT-ROCHE-3483055

PATIENT
  Age: 80 Year
  Sex: Male

DRUGS (5)
  1. BENDAMUSTINE HYDROCHLORIDE [Suspect]
     Active Substance: BENDAMUSTINE HYDROCHLORIDE
     Indication: Follicular lymphoma
     Dosage: UNK
     Route: 065
  2. RITUXIMAB [Suspect]
     Active Substance: RITUXIMAB
     Indication: Follicular lymphoma
     Dosage: UNK
     Route: 065
  3. ELASOMERAN [Concomitant]
     Active Substance: ELASOMERAN
     Indication: Immunisation
     Dosage: RECEIVED A THIRD VACCINE DOSE BETWEEN DECEMBER 2021 AND JANUARY 2022 FOR VACCINATION
     Route: 065
  4. ELASOMERAN [Concomitant]
     Active Substance: ELASOMERAN
     Dosage: FIRST DOSE
     Route: 065
     Dates: start: 202103
  5. ELASOMERAN [Concomitant]
     Active Substance: ELASOMERAN
     Dosage: 2ND DOSE 28 DAYS LATER
     Route: 065

REACTIONS (2)
  - Breakthrough COVID-19 [Unknown]
  - Vaccination failure [Unknown]
